FAERS Safety Report 7989839-3 (Version None)
Quarter: 2011Q4

REPORT INFORMATION
  Report Type: 
  Country: None (occurrence: None)
  Receive Date: 20111219
  Receipt Date: 20101217
  Transmission Date: 20120403
  Serious: No
  Sender: FDA-Public Use
  Company Number: US-ASTRAZENECA-2010SE59733

PATIENT
  Age: 25970 Day
  Sex: Male
  Weight: 116.1 kg

DRUGS (4)
  1. ATACAND HCT [Concomitant]
  2. LEXAPRO [Concomitant]
  3. METFORMIN HCL [Concomitant]
  4. CRESTOR [Suspect]
     Indication: HYPERCHOLESTEROLAEMIA
     Route: 048
     Dates: start: 20101212

REACTIONS (1)
  - SOMNOLENCE [None]
